FAERS Safety Report 18996857 (Version 1)
Quarter: 2021Q1

REPORT INFORMATION
  Report Type: Spontaneous
  Country: US (occurrence: US)
  Receive Date: 20210311
  Receipt Date: 20210311
  Transmission Date: 20210420
  Serious: No
  Sender: FDA-Public Use
  Company Number: US-HIKMA PHARMACEUTICALS USA INC.-US-H14001-20-05225

PATIENT
  Age: 66 Year
  Sex: Female

DRUGS (1)
  1. FLUTICASONE. [Suspect]
     Active Substance: FLUTICASONE
     Indication: MULTIPLE ALLERGIES
     Dosage: IN EACH NOSTRIL
     Route: 045
     Dates: start: 20201104, end: 20201107

REACTIONS (4)
  - Underdose [Not Recovered/Not Resolved]
  - Hypogeusia [Not Recovered/Not Resolved]
  - Product use in unapproved indication [Recovered/Resolved]
  - Anosmia [Not Recovered/Not Resolved]
